FAERS Safety Report 9188183 (Version 2)
Quarter: 2012Q4

REPORT INFORMATION
  Report Type: 
  Country: US (occurrence: US)
  Receive Date: 20121126
  Receipt Date: 20121205
  Transmission Date: 20130627
  Serious: Yes (Other)
  Sender: FDA-Public Use
  Company Number: US-RB-046800-12

PATIENT
  Age: 68 Year
  Sex: Male

DRUGS (4)
  1. MUCINEX FAST MAX ADULT CONGESTION + COUGH [Suspect]
     Indication: COUGH
     Dosage: Patient took 2 capfuls of the liquid
     Route: 048
     Dates: end: 20121116
  2. MUCINEX FAST MAX ADULT CONGESTION + COUGH [Suspect]
  3. MUCINEX FAST MAX ADULT CONGESTION + COUGH [Suspect]
  4. Z PACK [Concomitant]
     Indication: PRODUCT USED FOR UNKNOWN INDICATION

REACTIONS (3)
  - Loss of consciousness [Recovered/Resolved]
  - Nausea [Recovered/Resolved]
  - Accidental overdose [Recovered/Resolved]
